FAERS Safety Report 25733975 (Version 1)
Quarter: 2025Q3

REPORT INFORMATION
  Report Type: Report from Study
  Country: GB (occurrence: GB)
  Receive Date: 20250828
  Receipt Date: 20250828
  Transmission Date: 20251021
  Serious: Yes (Other)
  Sender: TEVA
  Company Number: GB-TEVA-VS-3364655

PATIENT
  Age: 53 Year
  Sex: Female

DRUGS (1)
  1. AJOVY [Suspect]
     Active Substance: FREMANEZUMAB-VFRM
     Indication: Migraine
     Dosage: AJOVY 225MG/1.5ML PFP 3
     Route: 065

REACTIONS (1)
  - Hypoacusis [Unknown]

NARRATIVE: CASE EVENT DATE: 20250101
